FAERS Safety Report 12879319 (Version 2)
Quarter: 2016Q4

REPORT INFORMATION
  Report Type: Report from Study
  Country: JP (occurrence: JP)
  Receive Date: 20161025
  Receipt Date: 20161101
  Transmission Date: 20170207
  Serious: Yes (Death, Other)
  Sender: FDA-Public Use
  Company Number: JP-ROCHE-1843218

PATIENT

DRUGS (7)
  1. METHOTREXATE. [Suspect]
     Active Substance: METHOTREXATE
     Indication: RHEUMATOID ARTHRITIS
     Route: 065
  2. INFLIXIMAB [Suspect]
     Active Substance: INFLIXIMAB
     Indication: RHEUMATOID ARTHRITIS
     Route: 065
  3. ETANERCEPT [Suspect]
     Active Substance: ETANERCEPT
     Indication: RHEUMATOID ARTHRITIS
     Route: 065
  4. TOCILIZUMAB [Suspect]
     Active Substance: TOCILIZUMAB
     Indication: RHEUMATOID ARTHRITIS
     Route: 042
  5. ADALIMUMAB [Suspect]
     Active Substance: ADALIMUMAB
     Indication: RHEUMATOID ARTHRITIS
     Route: 065
  6. ABATACEPT [Suspect]
     Active Substance: ABATACEPT
     Indication: RHEUMATOID ARTHRITIS
     Route: 065
  7. PREDNISOLONE. [Concomitant]
     Active Substance: PREDNISOLONE
     Indication: RHEUMATOID ARTHRITIS
     Route: 065

REACTIONS (13)
  - Tuberculosis [Unknown]
  - Pneumocystis jirovecii pneumonia [Unknown]
  - Connective tissue disorder [Unknown]
  - Cardiovascular disorder [Unknown]
  - Urogenital disorder [Unknown]
  - Musculoskeletal disorder [Unknown]
  - Infusion related reaction [Unknown]
  - Respiratory disorder [Fatal]
  - Mycobacterial infection [Unknown]
  - Skin disorder [Unknown]
  - Neoplasm [Unknown]
  - Drug ineffective [Unknown]
  - Infection [Unknown]
